FAERS Safety Report 8131396 (Version 4)
Quarter: 2014Q3

REPORT INFORMATION
  Report Type: Spontaneous
  Country: US (occurrence: US)
  Receive Date: 20110912
  Receipt Date: 20140703
  Transmission Date: 20150326
  Serious: Yes (Hospitalization)
  Sender: FDA-Public Use
  Company Number: US-GLAXOSMITHKLINE-A0943795A

PATIENT
  Sex: Female
  Weight: 84.1 kg

DRUGS (1)
  1. AVANDIA [Suspect]
     Active Substance: ROSIGLITAZONE MALEATE
     Indication: DIABETES MELLITUS
     Dosage: 4MG PER DAY
     Route: 048
     Dates: start: 20091112, end: 20100107

REACTIONS (6)
  - Myocardial infarction [Not Recovered/Not Resolved]
  - Heart rate irregular [Unknown]
  - Cardiac failure congestive [Unknown]
  - Thrombosis [Unknown]
  - Pulmonary oedema [Unknown]
  - Cardiogenic shock [Unknown]
